FAERS Safety Report 5742162-X (Version None)
Quarter: 2008Q2

REPORT INFORMATION
  Report Type: 
  Country: None (occurrence: None)
  Receive Date: 20080518
  Receipt Date: 20080501
  Transmission Date: 20081010
  Serious: Yes (Hospitalization, Other)
  Sender: FDA-Public Use
  Company Number: MSER20080007

PATIENT
  Age: 40 Year
  Sex: Female

DRUGS (6)
  1. MORPHINE SULFATE [Suspect]
     Indication: ABDOMINAL PAIN
     Dosage: 40 MG, DAILY IV
     Route: 042
  2. MORPHINE SULFATE [Suspect]
     Indication: ABDOMINAL PAIN
     Dosage: 40 TO 60 MG DAILY IV
     Route: 042
  3. MORPHINE SULFATE [Suspect]
     Indication: ABDOMINAL PAIN
     Dosage: 80 MG, DAILY INTRAVENOUS
     Route: 042
  4. CLONIDINE [Concomitant]
  5. LORAZEPAM [Concomitant]
  6. DESIPRAMINE HCL [Concomitant]

REACTIONS (11)
  - ABDOMINAL PAIN [None]
  - ADHESION [None]
  - ANASTOMOTIC COMPLICATION [None]
  - APPENDICITIS [None]
  - CONSTIPATION [None]
  - INTESTINAL PERFORATION [None]
  - IRRITABLE BOWEL SYNDROME [None]
  - PERITONITIS [None]
  - POST PROCEDURAL COMPLICATION [None]
  - SMALL INTESTINAL OBSTRUCTION [None]
  - SURGICAL PROCEDURE REPEATED [None]
